FAERS Safety Report 7306255-8 (Version None)
Quarter: 2011Q1

REPORT INFORMATION
  Report Type: 
  Country: None (occurrence: None)
  Receive Date: 20110222
  Receipt Date: 20110216
  Transmission Date: 20110831
  Serious: Yes (Life-Threatening)
  Sender: FDA-Public Use
  Company Number: JP-EISAI INC-E2090-01498-SPO-JP

PATIENT
  Age: 75 Year
  Sex: Male

DRUGS (1)
  1. EXCEGRAN [Suspect]
     Indication: EPILEPSY
     Route: 048
     Dates: start: 20101201, end: 20110201

REACTIONS (1)
  - TOXIC EPIDERMAL NECROLYSIS [None]
